FAERS Safety Report 21703535 (Version 1)
Quarter: 2022Q4

REPORT INFORMATION
  Report Type: Report from Study
  Country: FR (occurrence: FR)
  Receive Date: 20221209
  Receipt Date: 20221209
  Transmission Date: 20230112
  Serious: Yes (Life-Threatening, Hospitalization, Other)
  Sender: FDA-Public Use
  Company Number: FR-BRISTOL-MYERS SQUIBB COMPANY-2022-148239

PATIENT
  Sex: Male
  Weight: 68 kg

DRUGS (5)
  1. LENALIDOMIDE [Suspect]
     Active Substance: LENALIDOMIDE
     Indication: Minimal residual disease
     Dosage: J1 AND J21
     Route: 048
     Dates: start: 20220421
  2. DEXAMETHASONE [Suspect]
     Active Substance: DEXAMETHASONE
     Indication: Minimal residual disease
     Dosage: J1-J8-J15-J21
     Route: 048
     Dates: start: 20220421
  3. ISATUXIMAB [Suspect]
     Active Substance: ISATUXIMAB
     Indication: Minimal residual disease
     Dosage: J1-J15
     Route: 042
     Dates: start: 20220421
  4. CARFILZOMIB [Suspect]
     Active Substance: CARFILZOMIB
     Indication: Minimal residual disease
     Dosage: 38 THEN 56 J1-J8-J15
     Route: 042
     Dates: start: 20220421
  5. MELPHALAN [Suspect]
     Active Substance: MELPHALAN
     Indication: Minimal residual disease
     Route: 065

REACTIONS (2)
  - Colitis [Recovered/Resolved]
  - Pneumonia [Recovered/Resolved]

NARRATIVE: CASE EVENT DATE: 20221202
